FAERS Safety Report 7133910-5 (Version None)
Quarter: 2010Q4

REPORT INFORMATION
  Report Type: 
  Country: None (occurrence: None)
  Receive Date: 20101203
  Receipt Date: 20101116
  Transmission Date: 20110411
  Serious: Yes (Other)
  Sender: FDA-Public Use
  Company Number: US-BAYER-201033324NA

PATIENT

DRUGS (6)
  1. YASMIN [Suspect]
     Indication: ORAL CONTRACEPTION
     Route: 048
     Dates: start: 20050801, end: 20081101
  2. YASMIN [Suspect]
     Indication: MENSTRUATION IRREGULAR
  3. CENTRUM [Concomitant]
     Route: 048
  4. VITAMIN B-12 [Concomitant]
     Route: 048
  5. IBUPROFEN [Concomitant]
  6. ADVIL [Concomitant]

REACTIONS (1)
  - CHOLELITHIASIS [None]
